FAERS Safety Report 20462712 (Version 1)
Quarter: 2022Q1

REPORT INFORMATION
  Report Type: Spontaneous
  Country: US (occurrence: US)
  Receive Date: 20220211
  Receipt Date: 20220211
  Transmission Date: 20220423
  Serious: Yes (Death)
  Sender: FDA-Public Use
  Company Number: US-CELGENE-USA-20220203357

PATIENT
  Age: 68 Year
  Sex: Male

DRUGS (3)
  1. REVLIMID [Suspect]
     Active Substance: LENALIDOMIDE
     Indication: Neutropenia
     Dosage: 25 MILLIGRAM
     Route: 048
     Dates: start: 202111
  2. REVLIMID [Suspect]
     Active Substance: LENALIDOMIDE
     Indication: Off label use
  3. REVLIMID [Suspect]
     Active Substance: LENALIDOMIDE
     Indication: Diffuse large B-cell lymphoma

REACTIONS (1)
  - Death [Fatal]

NARRATIVE: CASE EVENT DATE: 20220121
